FAERS Safety Report 17554257 (Version 2)
Quarter: 2025Q3

REPORT INFORMATION
  Report Type: Spontaneous
  Country: EU (occurrence: EU)
  Receive Date: 20200318
  Receipt Date: 20250710
  Transmission Date: 20251021
  Serious: Yes (Life-Threatening, Other)
  Sender: TEVA
  Company Number: None

PATIENT
  Age: 78 Year
  Sex: Male
  Weight: 100 kg

DRUGS (11)
  1. FENTANYL [Suspect]
     Active Substance: FENTANYL
     Indication: Pain
     Dosage: DOSAGE TEXT: LONG-TERM MEDICATION, LAST CHANGE 13.02.2020, 1 DF,  50MG/72H
     Route: 062
  2. ACTRAPID [Concomitant]
     Active Substance: INSULIN HUMAN
     Indication: Diabetes mellitus
     Route: 058
  3. MCP [Concomitant]
     Active Substance: METOCLOPRAMIDE HYDROCHLORIDE
     Indication: Nausea
     Dosage: DOSAGE TEXT: 1X/D, 1 DF
     Route: 048
  4. METHOTREXATE SODIUM [Suspect]
     Active Substance: METHOTREXATE SODIUM
     Indication: Rheumatoid arthritis
     Dosage: DOSAGE TEXT: FRIDAYS CONTINUOUS MEDICATION, 1 DF
     Route: 065
  5. IBUPROFEN [Concomitant]
     Active Substance: IBUPROFEN
     Indication: Pain
     Route: 048
  6. INSULIN GLARGINE [Concomitant]
     Active Substance: INSULIN GLARGINE
     Indication: Diabetes mellitus
     Route: 058
  7. LEVOTHYROXINE SODIUM [Concomitant]
     Active Substance: LEVOTHYROXINE SODIUM
     Indication: Hypothyroidism
     Dosage: DOSAGE TEXT: 1X/D, 100
     Route: 065
  8. METAMIZOL [Suspect]
     Active Substance: METAMIZOLE SODIUM
     Indication: Groin pain
     Dosage: DOSAGE TEXT: 2X1/D
     Route: 048
     Dates: start: 20200201
  9. FOLIC ACID [Concomitant]
     Active Substance: FOLIC ACID
     Dosage: DOSAGE TEXT: ONLY ON SATURDAYS
  10. MIRTAZAPINE [Concomitant]
     Active Substance: MIRTAZAPINE
     Indication: Depression
     Dosage: DOSAGE TEXT: 1X/D
     Route: 048
  11. CHOLECALCIFEROL [Concomitant]
     Active Substance: CHOLECALCIFEROL
     Dosage: DOSAGE TEXT: 1X/D, 1 DF, FORM STRENGTH: 1000 IE

REACTIONS (10)
  - Leukopenia [Not Recovered/Not Resolved]
  - Myelosuppression [Not Recovered/Not Resolved]
  - Umbilical hernia [Not Recovered/Not Resolved]
  - Agranulocytosis [Not Recovered/Not Resolved]
  - Thrombocytopenia [Not Recovered/Not Resolved]
  - Abdominal pain upper [Not Recovered/Not Resolved]
  - Abdominal pain upper [Not Recovered/Not Resolved]
  - Candida infection [Not Recovered/Not Resolved]
  - Petechiae [Not Recovered/Not Resolved]
  - Abdominal pain [Not Recovered/Not Resolved]

NARRATIVE: CASE EVENT DATE: 20200202
